FAERS Safety Report 23599137 (Version 1)
Quarter: 2024Q1

REPORT INFORMATION
  Report Type: Spontaneous
  Country: US (occurrence: US)
  Receive Date: 20240306
  Receipt Date: 20240306
  Transmission Date: 20240410
  Serious: No
  Sender: FDA-Public Use
  Company Number: US-HORIZON THERAPEUTICS-HZN-2023-010818

PATIENT

DRUGS (1)
  1. RAVICTI [Suspect]
     Active Substance: GLYCEROL PHENYLBUTYRATE
     Indication: Product used for unknown indication
     Dosage: 3.5 ML, TID
     Route: 065

REACTIONS (4)
  - Gait disturbance [Recovered/Resolved]
  - Photosensitivity reaction [Unknown]
  - Somnolence [Recovered/Resolved]
  - Migraine [Recovered/Resolved]
